FAERS Safety Report 20299519 (Version 2)
Quarter: 2022Q1

REPORT INFORMATION
  Report Type: Spontaneous
  Country: US (occurrence: US)
  Receive Date: 20220105
  Receipt Date: 20220119
  Transmission Date: 20220424
  Serious: No
  Sender: FDA-Public Use
  Company Number: US-LUNDBECK-DKLU3042150

PATIENT
  Age: 7 Year
  Sex: Male

DRUGS (2)
  1. SABRIL [Suspect]
     Active Substance: VIGABATRIN
     Indication: Tuberous sclerosis complex
     Route: 048
     Dates: start: 201611
  2. SABRIL [Suspect]
     Active Substance: VIGABATRIN
     Indication: Infantile spasms

REACTIONS (1)
  - Poor quality sleep [Recovering/Resolving]
